FAERS Safety Report 6037807-3 (Version None)
Quarter: 2009Q1

REPORT INFORMATION
  Report Type: 
  Country: None (occurrence: None)
  Receive Date: 20090113
  Receipt Date: 20081230
  Transmission Date: 20090719
  Serious: Yes (Hospitalization)
  Sender: FDA-Public Use
  Company Number: APP200801261

PATIENT
  Age: 58 Year
  Sex: Male

DRUGS (5)
  1. VANCOMYCIN HYDROCHLORIDE [Suspect]
     Indication: PREMEDICATION
  2. BORTEZOMIB (BORTEZOMIB) [Suspect]
     Indication: MULTIPLE MYELOMA
  3. TEICOPLANIN (TEICOPLANIN) [Suspect]
     Indication: PREMEDICATION
  4. MELPHALAN (MELPHALAN) [Concomitant]
  5. ACYCLOVIR [Concomitant]

REACTIONS (13)
  - ALANINE AMINOTRANSFERASE INCREASED [None]
  - ASCITES [None]
  - ASPARTATE AMINOTRANSFERASE INCREASED [None]
  - BLOOD ALKALINE PHOSPHATASE INCREASED [None]
  - GAMMA-GLUTAMYLTRANSFERASE INCREASED [None]
  - HEPATIC VEIN OCCLUSION [None]
  - HEPATOMEGALY [None]
  - JAUNDICE [None]
  - MUCOSAL INFLAMMATION [None]
  - NEOPLASM PROGRESSION [None]
  - PANCYTOPENIA [None]
  - STAPHYLOCOCCAL IDENTIFICATION TEST POSITIVE [None]
  - STEM CELL TRANSPLANT [None]
